FAERS Safety Report 9018019 (Version 1)
Quarter: 2013Q1

REPORT INFORMATION
  Report Type: Spontaneous
  Country: US (occurrence: US)
  Receive Date: 20130118
  Receipt Date: 20130118
  Transmission Date: 20140127
  Serious: Yes (Hospitalization)
  Sender: FDA-Public Use
  Company Number: US-AMGEN-USASP2013002871

PATIENT
  Age: 57 Year
  Sex: Female
  Weight: 111.11 kg

DRUGS (18)
  1. ENBREL [Suspect]
     Indication: RHEUMATOID ARTHRITIS
     Dosage: 50 MG, QWK
     Route: 058
  2. CENTRUM                            /06095001/ [Concomitant]
     Dosage: UNK
  3. LASIX                              /00032601/ [Concomitant]
     Dosage: 20 MG, UNK
  4. METHOTREXATE [Concomitant]
     Dosage: 2.5 MG, UNK
  5. ULTRAM ER [Concomitant]
     Dosage: 300 MG, UNK
  6. VIVELLE DOT [Concomitant]
     Dosage: 0.025 MG, UNK
  7. METFORMIN [Concomitant]
     Dosage: 500 MG, UNK
  8. FOLIC ACID [Concomitant]
     Dosage: 1 MG, UNK
  9. GLIPIZIDE [Concomitant]
     Dosage: 10 MG, UNK
  10. NEXIUM                             /01479302/ [Concomitant]
     Dosage: 40 MG, UNK
  11. DILTIAZEM [Concomitant]
     Dosage: 120 MG, UNK
     Route: 048
  12. ATROVENT [Concomitant]
     Dosage: 18 MUG, UNK
  13. OSCAL [Concomitant]
     Dosage: UNK 500/TAB 200 D-3
  14. FISH OIL [Concomitant]
     Dosage: UNK
  15. POTASSIUM [Concomitant]
     Dosage: UNK
  16. RANEXA [Concomitant]
     Dosage: 500 MG, UNK
  17. ASTELIN                            /00085801/ [Concomitant]
     Dosage: 137 MUG, UNK
  18. VITAMIN B COMPLEX [Concomitant]
     Dosage: UNK

REACTIONS (3)
  - Abdominal pain upper [Unknown]
  - Bronchitis [Unknown]
  - Chest pain [Unknown]
